FAERS Safety Report 4680566-7 (Version None)
Quarter: 2005Q2

REPORT INFORMATION
  Report Type: 
  Country: None (occurrence: None)
  Receive Date: 20050531
  Receipt Date: 20050126
  Transmission Date: 20051028
  Serious: No
  Sender: FDA-Public Use
  Company Number: WAES 0501USA04051

PATIENT
  Age: 53 Year
  Sex: Male

DRUGS (4)
  1. ZETIA [Suspect]
     Indication: BLOOD CHOLESTEROL INCREASED
     Dosage: 10 MG/DAILY/PO
     Route: 048
     Dates: start: 20041001, end: 20041101
  2. ZETIA [Suspect]
     Indication: BLOOD CHOLESTEROL INCREASED
     Dosage: 10 MG/DAILY/PO
     Route: 048
     Dates: start: 20041201, end: 20050125
  3. VYTORIN [Suspect]
     Dosage: PO
     Route: 048
     Dates: start: 20041101, end: 20041201
  4. PREVACID [Concomitant]

REACTIONS (2)
  - MUSCLE SPASMS [None]
  - MYALGIA [None]
